FAERS Safety Report 22172956 (Version 2)
Quarter: 2023Q2

REPORT INFORMATION
  Report Type: Spontaneous
  Country: CN (occurrence: CN)
  Receive Date: 20230404
  Receipt Date: 20230417
  Transmission Date: 20230722
  Serious: Yes (Death)
  Sender: FDA-Public Use
  Company Number: CN-BAYER-2023A043472

PATIENT
  Age: 79 Year
  Sex: Male

DRUGS (10)
  1. AVELOX [Suspect]
     Active Substance: MOXIFLOXACIN HYDROCHLORIDE
     Indication: Chronic obstructive pulmonary disease
     Dosage: UNK
     Route: 041
     Dates: start: 20230320, end: 20230320
  2. CEFTAZIDIME [Concomitant]
     Active Substance: CEFTAZIDIME
     Dosage: WITH 0.9% SODIUM CHLORIDE 100ML
     Dates: start: 20230320, end: 20230320
  3. BROMHEXINE HYDROCHLORIDE [Concomitant]
     Active Substance: BROMHEXINE HYDROCHLORIDE
     Dosage: WITH 0.9% SODIUM CHLORIDE 100ML
     Dates: start: 20230320, end: 20230320
  4. DOXOFYLLINE [Concomitant]
     Active Substance: DOXOFYLLINE
     Dosage: WITH 0.9% SODIUM CHLORIDE 100ML
     Dates: start: 20230320, end: 20230320
  5. CYSTEINE [Concomitant]
     Active Substance: CYSTEINE
     Dosage: UNK
     Route: 055
     Dates: start: 20230320, end: 20230320
  6. TERBUTALINE [Concomitant]
     Active Substance: TERBUTALINE
     Dosage: UNK
     Route: 055
     Dates: start: 20230320, end: 20230320
  7. BUDESONIDE [Concomitant]
     Active Substance: BUDESONIDE
     Dosage: UNK
     Route: 055
     Dates: start: 20230320, end: 20230320
  8. PANTOPRAZOLE SODIUM [Concomitant]
     Active Substance: PANTOPRAZOLE SODIUM
     Dosage: UNK
     Dates: start: 20230320, end: 20230320
  9. LANSOPRAZOLE [Concomitant]
     Active Substance: LANSOPRAZOLE
     Dosage: UNK
     Dates: start: 20230320, end: 20230320
  10. METHYLPREDNISOLONE SODIUM SUCCINATE [Concomitant]
     Active Substance: METHYLPREDNISOLONE SODIUM SUCCINATE
     Dosage: UNK
     Dates: start: 20230320, end: 20230320

REACTIONS (2)
  - Arrhythmia [Fatal]
  - Off label use [None]

NARRATIVE: CASE EVENT DATE: 20230320
